FAERS Safety Report 20227622 (Version 2)
Quarter: 2022Q1

REPORT INFORMATION
  Report Type: Report from Study
  Country: US (occurrence: US)
  Receive Date: 20211224
  Receipt Date: 20220318
  Transmission Date: 20220423
  Serious: Yes (Hospitalization)
  Sender: FDA-Public Use
  Company Number: US-BIOVITRUM-2021US12388

PATIENT
  Age: 80 Year
  Sex: Male

DRUGS (2)
  1. KINERET [Suspect]
     Active Substance: ANAKINRA
     Indication: Immune system disorder
     Route: 058
     Dates: start: 20200212
  2. KINERET [Suspect]
     Active Substance: ANAKINRA
     Indication: Plasma cell myeloma

REACTIONS (5)
  - Viral infection [Unknown]
  - Asthenia [Unknown]
  - Decreased appetite [Unknown]
  - White blood cell count abnormal [Recovered/Resolved]
  - Off label use [Not Recovered/Not Resolved]

NARRATIVE: CASE EVENT DATE: 20200212
